FAERS Safety Report 6472069-4 (Version None)
Quarter: 2009Q4

REPORT INFORMATION
  Report Type: 
  Country: None (occurrence: None)
  Receive Date: 20091203
  Receipt Date: 20080521
  Transmission Date: 20100525
  Serious: Yes (Hospitalization, Other)
  Sender: FDA-Public Use
  Company Number: JP-ELI_LILLY_AND_COMPANY-JP200804000347

PATIENT
  Sex: Male
  Weight: 46.8 kg

DRUGS (6)
  1. PEMETREXED [Suspect]
     Indication: PLEURAL MESOTHELIOMA MALIGNANT
     Dosage: 700 MG, OTHER
     Route: 042
     Dates: start: 20070717, end: 20070717
  2. CISPLATIN [Suspect]
     Indication: PLEURAL MESOTHELIOMA MALIGNANT
     Dosage: 75 MG, OTHER
     Route: 042
     Dates: start: 20070717, end: 20070717
  3. FOLIAMIN [Concomitant]
     Dosage: 0.5 MG, DAILY (1/D)
     Route: 048
     Dates: start: 20070705, end: 20070724
  4. METHYCOBAL [Concomitant]
     Dosage: 1 MG, UNK
     Route: 030
     Dates: start: 20070706, end: 20070706
  5. KYTRIL /01178102/ [Concomitant]
     Indication: PROPHYLAXIS
     Dosage: 3 MG, UNK
     Route: 042
     Dates: start: 20070717, end: 20070717
  6. PRIMPERAN /00041901/ [Concomitant]
     Indication: PROPHYLAXIS
     Dosage: 20 MG, UNK
     Route: 042
     Dates: start: 20070717, end: 20070718

REACTIONS (2)
  - ENTEROCOLITIS [None]
  - SEPSIS [None]
